FAERS Safety Report 16211096 (Version 1)
Quarter: 2019Q2

REPORT INFORMATION
  Report Type: Spontaneous
  Country: DE (occurrence: DE)
  Receive Date: 20190418
  Receipt Date: 20190418
  Transmission Date: 20190711
  Serious: Yes (Life-Threatening, Other)
  Sender: FDA-Public Use
  Company Number: DE-AUROBINDO-AUR-APL-2019-020268

PATIENT

DRUGS (4)
  1. CLOPIDOGREL [Suspect]
     Active Substance: CLOPIDOGREL BISULFATE
     Indication: PERIPHERAL ARTERIAL OCCLUSIVE DISEASE
     Dosage: 75 MILLIGRAM
     Route: 048
     Dates: start: 20190322, end: 20190322
  2. ASPIRIN. [Suspect]
     Active Substance: ASPIRIN
     Indication: PERIPHERAL ARTERIAL OCCLUSIVE DISEASE
     Dosage: 100 MILLIGRAM
     Route: 048
     Dates: start: 2017, end: 20190322
  3. FALITHROM [Suspect]
     Active Substance: PHENPROCOUMON
     Indication: PERIPHERAL ARTERIAL OCCLUSIVE DISEASE
     Dosage: UNK
     Route: 048
     Dates: start: 20190314, end: 20190320
  4. HEPARIN [Suspect]
     Active Substance: HEPARIN SODIUM
     Indication: PERIPHERAL ARTERIAL OCCLUSIVE DISEASE
     Dosage: 3X5000
     Route: 048
     Dates: start: 20190318, end: 20190322

REACTIONS (2)
  - Shock haemorrhagic [Unknown]
  - Gastrointestinal haemorrhage [Unknown]

NARRATIVE: CASE EVENT DATE: 20190322
